FAERS Safety Report 4645564-8 (Version None)
Quarter: 2005Q2

REPORT INFORMATION
  Report Type: 
  Country: None (occurrence: None)
  Receive Date: 20050425
  Receipt Date: 20050412
  Transmission Date: 20051028
  Serious: Yes (Other)
  Sender: FDA-Public Use
  Company Number: 2005047463

PATIENT
  Age: 55 Year
  Sex: Male
  Weight: 118 kg

DRUGS (2)
  1. CELEBREX [Suspect]
     Indication: OSTEOARTHRITIS
     Dosage: 200 MG (200 MG, 1 IN 1 D), ORAL
     Route: 048
     Dates: start: 20010201
  2. ACETAMINOPHEN [Concomitant]

REACTIONS (1)
  - NON-OBSTRUCTIVE CARDIOMYOPATHY [None]
